FAERS Safety Report 6747439-7 (Version None)
Quarter: 2010Q2

REPORT INFORMATION
  Report Type: 
  Country: None (occurrence: None)
  Receive Date: 20100526
  Receipt Date: 20100512
  Transmission Date: 20101027
  Serious: Yes (Hospitalization, Other)
  Sender: FDA-Public Use
  Company Number: 2010FR0012

PATIENT
  Age: 10 Year
  Sex: Male

DRUGS (1)
  1. ORFADIN [Suspect]
     Indication: TYROSINAEMIA
     Dosage: 1.07 MG/KG (30 MG,1 IN 1 D)
     Route: 048
     Dates: start: 20000413

REACTIONS (5)
  - DRUG INEFFECTIVE [None]
  - DRUG TOXICITY [None]
  - HEPATIC FIBROSIS [None]
  - HEPATIC NEOPLASM MALIGNANT [None]
  - LIVER DISORDER [None]
